FAERS Safety Report 5766110-1 (Version None)
Quarter: 2008Q2

REPORT INFORMATION
  Report Type: 
  Country: None (occurrence: None)
  Receive Date: 20080605
  Receipt Date: 20080520
  Transmission Date: 20081010
  Serious: Yes (Hospitalization)
  Sender: FDA-Public Use
  Company Number: 001#1#2008-00320

PATIENT
  Age: 84 Year
  Sex: Female

DRUGS (2)
  1. NEUPRO [Suspect]
     Indication: PARKINSON'S DISEASE
     Dosage: 2 MG/24H (2 MG/24H 1 IN 1 DAY(S))
     Route: 062
     Dates: start: 20080220, end: 20080221
  2. LEVODOPA-CARIBODOPA (CARIBODOPA, LEVODOPA) [Concomitant]

REACTIONS (1)
  - CIRCULATORY COLLAPSE [None]
